FAERS Safety Report 5664339-4 (Version None)
Quarter: 2008Q1

REPORT INFORMATION
  Report Type: 
  Country: None (occurrence: None)
  Receive Date: 20080312
  Receipt Date: 20080225
  Transmission Date: 20080703
  Serious: No
  Sender: FDA-Public Use
  Company Number: 002#2#2008-00084

PATIENT
  Age: 71 Year
  Sex: Female

DRUGS (5)
  1. NEUPRO [Suspect]
     Indication: DRUG USE FOR UNKNOWN INDICATION
     Dosage: 2MG/24H,1 IN 2 D,TRANSDERMAL; 4MG/24H,1 IN 1 D,TRANSDERMAL; 6MG/24H,1 IN 1 D,TRANSDERMAL
     Route: 062
     Dates: start: 20071201, end: 20070101
  2. NEUPRO [Suspect]
     Indication: DRUG USE FOR UNKNOWN INDICATION
     Dosage: 2MG/24H,1 IN 2 D,TRANSDERMAL; 4MG/24H,1 IN 1 D,TRANSDERMAL; 6MG/24H,1 IN 1 D,TRANSDERMAL
     Route: 062
     Dates: start: 20071201, end: 20070101
  3. NEUPRO [Suspect]
     Indication: DRUG USE FOR UNKNOWN INDICATION
     Dosage: 2MG/24H,1 IN 2 D,TRANSDERMAL; 4MG/24H,1 IN 1 D,TRANSDERMAL; 6MG/24H,1 IN 1 D,TRANSDERMAL
     Route: 062
     Dates: start: 20070101, end: 20080101
  4. NEUPRO [Suspect]
     Indication: DRUG USE FOR UNKNOWN INDICATION
     Dosage: 2MG/24H,1 IN 2 D,TRANSDERMAL; 4MG/24H,1 IN 1 D,TRANSDERMAL; 6MG/24H,1 IN 1 D,TRANSDERMAL
     Route: 062
     Dates: start: 20080101
  5. BENADRYL [Concomitant]

REACTIONS (3)
  - APPLICATION SITE RASH [None]
  - ERYTHEMA [None]
  - PHARMACEUTICAL PRODUCT COMPLAINT [None]
